FAERS Safety Report 9228758 (Version 1)
Quarter: 2013Q2

REPORT INFORMATION
  Report Type: Spontaneous
  Country: US (occurrence: US)
  Receive Date: 20130412
  Receipt Date: 20130412
  Transmission Date: 20140414
  Serious: No
  Sender: FDA-Public Use
  Company Number: US-009507513-1303USA014344

PATIENT
  Age: 2 Year
  Sex: 0

DRUGS (2)
  1. REBETOL [Suspect]
  2. INTERFERON (UNSPECIFIED) [Suspect]

REACTIONS (3)
  - Stomatitis [Unknown]
  - Mouth haemorrhage [Unknown]
  - Exposure via father [Unknown]
